FAERS Safety Report 19932273 (Version 1)
Quarter: 2021Q4

REPORT INFORMATION
  Report Type: Spontaneous
  Country: US (occurrence: US)
  Receive Date: 20211007
  Receipt Date: 20211007
  Transmission Date: 20220303
  Serious: Yes (unspecified)
  Sender: FDA-Public Use
  Company Number: None

PATIENT
  Age: 77 Year
  Sex: Female
  Weight: 109 kg

DRUGS (2)
  1. BARICITINIB [Suspect]
     Active Substance: BARICITINIB
     Indication: COVID-19
     Route: 048
     Dates: start: 20210925, end: 20211005
  2. DEXAMETHASONE [Concomitant]
     Active Substance: DEXAMETHASONE
     Dates: start: 20210921, end: 20211005

REACTIONS (5)
  - Respiratory disorder [None]
  - Condition aggravated [None]
  - Blood culture positive [None]
  - Vascular device infection [None]
  - Staphylococcal infection [None]

NARRATIVE: CASE EVENT DATE: 20211003
